FAERS Safety Report 5055163-4 (Version None)
Quarter: 2006Q3

REPORT INFORMATION
  Report Type: 
  Country: None (occurrence: None)
  Receive Date: 20060714
  Receipt Date: 20060703
  Transmission Date: 20061208
  Serious: Yes (Hospitalization)
  Sender: FDA-Public Use
  Company Number: 02100-JPN-06-0310

PATIENT
  Age: 76 Year
  Sex: Female

DRUGS (22)
  1. ONE OF CILOSTAZOL [Suspect]
     Indication: CEREBRAL INFARCTION
     Dosage: 100 MG OR 200MG
     Route: 048
     Dates: start: 20060103, end: 20060116
  2. ONE OF CILOSTAZOL [Suspect]
     Indication: CEREBRAL INFARCTION
     Dosage: 100 MG OR 200MG
     Route: 048
     Dates: start: 20060117
  3. CLOPIDOGREL [Suspect]
     Indication: CEREBRAL INFARCTION
     Dosage: 200 MG OR 75 MG
     Route: 048
  4. ASPIRIN [Concomitant]
  5. ITOPRIDE HYDROCHLORIDE [Concomitant]
  6. DIMETHICONE/GUAIAZULENE [Concomitant]
  7. GINGKO BILOBA EXTRACT [Concomitant]
  8. BENEXATE HYDROCHLORIDE BETADEX [Concomitant]
  9. ATORVASTATIN CALCIUM [Concomitant]
  10. ACETYL-L-CARNITINE HYDROCHLORIDE [Concomitant]
  11. CHLORHEXIDINE GLUCONATE [Concomitant]
  12. AMMONIUM CHLORIDE/CHLORPHENIRAMINE MALEATE/DEXTROMETHORPHAN/DL-METHYLE [Concomitant]
  13. MOSAPRIDE CITRATE [Concomitant]
  14. PANCREATIN/BROMELAIN/DIMETHICONE [Concomitant]
  15. ACETAMINOPHEN [Concomitant]
  16. CILAZAPRIL [Concomitant]
  17. ECABET SODIUM [Concomitant]
  18. ASPIRIN [Concomitant]
  19. AMLODIPINE BESYLATE [Concomitant]
  20. CALCIUM CARBONATE/CHOLECARCIFEROL [Concomitant]
  21. CANDESARTAN CILEXETIL [Concomitant]
  22. INDAPAMIDE [Concomitant]

REACTIONS (3)
  - EPIGASTRIC DISCOMFORT [None]
  - METASTASES TO PERITONEUM [None]
  - NAUSEA [None]
